FAERS Safety Report 24903277 (Version 1)
Quarter: 2025Q1

REPORT INFORMATION
  Report Type: Spontaneous
  Country: IN (occurrence: IN)
  Receive Date: 20250130
  Receipt Date: 20250130
  Transmission Date: 20250409
  Serious: Yes (Other)
  Sender: CARLSBAD
  Company Number: IN-CARLSBAD-2025INCTILIT00003

PATIENT
  Age: 22 Year
  Sex: Female

DRUGS (3)
  1. ACYCLOVIR [Suspect]
     Active Substance: ACYCLOVIR
     Indication: Skin papilloma
     Route: 026
  2. ACYCLOVIR [Suspect]
     Active Substance: ACYCLOVIR
     Indication: Skin papilloma
  3. LIDOCAINE HYDROCHLORIDE [Suspect]
     Active Substance: LIDOCAINE HYDROCHLORIDE
     Indication: Skin papilloma
     Route: 065

REACTIONS (5)
  - Thrombosis [Unknown]
  - Blister [Unknown]
  - Off label use [Unknown]
  - Product use issue [Unknown]
  - Incorrect product formulation administered [Unknown]
